FAERS Safety Report 7333438-3 (Version None)
Quarter: 2011Q1

REPORT INFORMATION
  Report Type: 
  Country: None (occurrence: None)
  Receive Date: 20110304
  Receipt Date: 20110222
  Transmission Date: 20110831
  Serious: Yes (Other)
  Sender: FDA-Public Use
  Company Number: FR-WATSON-2011-01399

PATIENT
  Age: 62 Year
  Sex: Female

DRUGS (1)
  1. PYRIDOXINE HYDROCHLORIDE [Suspect]
     Indication: VITAMIN B6 DEFICIENCY
     Dosage: UNK
     Route: 048

REACTIONS (3)
  - DEMYELINATING POLYNEUROPATHY [None]
  - DYSAESTHESIA [None]
  - PARAESTHESIA [None]
